FAERS Safety Report 4588947-7 (Version None)
Quarter: 2005Q1

REPORT INFORMATION
  Report Type: 
  Country: None (occurrence: None)
  Receive Date: 20050216
  Receipt Date: 20050202
  Transmission Date: 20050727
  Serious: Yes (Other)
  Sender: FDA-Public Use
  Company Number: USA050289814

PATIENT
  Age: 58 Year
  Sex: Female

DRUGS (1)
  1. PROZAC [Suspect]
     Indication: DEPRESSION
     Dosage: 80 MG DAY
     Dates: start: 20020101

REACTIONS (2)
  - DISTURBANCE IN ATTENTION [None]
  - KNEE ARTHROPLASTY [None]
